FAERS Safety Report 22052906 (Version 3)
Quarter: 2024Q4

REPORT INFORMATION
  Report Type: Spontaneous
  Country: FR (occurrence: FR)
  Receive Date: 20230302
  Receipt Date: 20241206
  Transmission Date: 20250114
  Serious: Yes (Hospitalization)
  Sender: SAMSUNG BIOEPIS
  Company Number: None

PATIENT
  Age: 65 Year
  Sex: Female

DRUGS (11)
  1. TRASTUZUMAB [Suspect]
     Active Substance: TRASTUZUMAB
     Indication: Product used for unknown indication
     Dosage: UNKNOWN;?THIRD-LINE TREATMENT;
     Route: 042
     Dates: start: 202005, end: 202104
  2. ENOXAPARIN SODIUM [Suspect]
     Active Substance: ENOXAPARIN SODIUM
     Indication: Thrombosis prophylaxis
     Route: 058
  3. XELODA [Suspect]
     Active Substance: CAPECITABINE
     Indication: Osteoporotic fracture
     Dosage: THIRD-LINE TREATMENT;
     Route: 048
  4. KEPPRA [Suspect]
     Active Substance: LEVETIRACETAM
     Indication: Epilepsy
     Dosage: FILM COATED
     Route: 048
     Dates: start: 20221207
  5. KEPPRA [Suspect]
     Active Substance: LEVETIRACETAM
     Dosage: FILM COATED
     Route: 048
     Dates: start: 202204
  6. KEPPRA [Suspect]
     Active Substance: LEVETIRACETAM
     Dosage: FILM COATED
     Route: 048
     Dates: start: 202011
  7. KEPPRA [Suspect]
     Active Substance: LEVETIRACETAM
     Dosage: FILM COATED
     Route: 048
     Dates: start: 20221124
  8. TUKYSA [Suspect]
     Active Substance: TUCATINIB
     Indication: Targeted cancer therapy
     Dosage: THIRD-LINE TREATMENT;
     Route: 048
  9. RACECADOTRIL [Suspect]
     Active Substance: RACECADOTRIL
     Indication: Prophylaxis against diarrhoea
     Route: 048
  10. IMODIUM [Suspect]
     Active Substance: LOPERAMIDE HYDROCHLORIDE
     Indication: Prophylaxis against diarrhoea
     Route: 048
  11. ECONAZOLE [Concomitant]
     Active Substance: ECONAZOLE
     Indication: Product used for unknown indication
     Dosage: UNKNOWN

REACTIONS (6)
  - Epilepsy [Recovering/Resolving]
  - Confusional state [Recovering/Resolving]
  - Status epilepticus [Recovering/Resolving]
  - Hypercapnia [Unknown]
  - Coma [Unknown]
  - Product use in unapproved indication [Not Recovered/Not Resolved]

NARRATIVE: CASE EVENT DATE: 20221114
